FAERS Safety Report 10287648 (Version 7)
Quarter: 2020Q2

REPORT INFORMATION
  Report Type: Spontaneous
  Country: US (occurrence: US)
  Receive Date: 20140709
  Receipt Date: 20200422
  Transmission Date: 20200713
  Serious: Yes (Hospitalization, Disabling, Other)
  Sender: FDA-Public Use
  Company Number: US-009507513-1406USA014021

PATIENT
  Sex: Female

DRUGS (4)
  1. FOSAMAX PLUS D [Suspect]
     Active Substance: ALENDRONATE SODIUM\CHOLECALCIFEROL
     Indication: OSTEOPENIA
     Dosage: 70 MG/2800 IU, UNK
     Route: 048
     Dates: start: 2007, end: 20091230
  2. BONIVA [Suspect]
     Active Substance: IBANDRONATE SODIUM
     Indication: OSTEOPENIA
     Dosage: 150 MG, QM
     Route: 065
     Dates: start: 2009, end: 2011
  3. NEXIUM [Concomitant]
     Active Substance: ESOMEPRAZOLE MAGNESIUM
     Indication: GASTROOESOPHAGEAL REFLUX DISEASE
     Dosage: UNK
     Route: 065
     Dates: start: 2006, end: 2012
  4. FOSAMAX [Suspect]
     Active Substance: ALENDRONATE SODIUM
     Indication: OSTEOPENIA
     Dosage: 70 MG, QM
     Route: 048
     Dates: start: 2007, end: 2009

REACTIONS (16)
  - Fall [Recovered/Resolved]
  - Femur fracture [Recovered/Resolved]
  - Pain in extremity [Recovered/Resolved]
  - Arthralgia [Recovered/Resolved]
  - Malignant melanoma [Unknown]
  - Intraductal proliferative breast lesion [Unknown]
  - Arthritis [Unknown]
  - Inappropriate schedule of product administration [Unknown]
  - Exostosis [Unknown]
  - Cataract [Unknown]
  - Post procedural fever [Unknown]
  - Ligament rupture [Unknown]
  - Cataract [Unknown]
  - Bone pain [Recovered/Resolved]
  - Hypertension [Unknown]
  - Phlebolith [Unknown]

NARRATIVE: CASE EVENT DATE: 2007
